FAERS Safety Report 4808593-7 (Version None)
Quarter: 2005Q4

REPORT INFORMATION
  Report Type: 
  Country: None (occurrence: None)
  Receive Date: 20051025
  Receipt Date: 20051013
  Transmission Date: 20060501
  Serious: Yes (Other)
  Sender: FDA-Public Use
  Company Number: FR-GLAXOSMITHKLINE-B0397783A

PATIENT
  Age: 6 Year
  Sex: Female

DRUGS (1)
  1. SERETIDE DISKUS [Suspect]
     Dosage: 1PUFF SINGLE DOSE
     Route: 055
     Dates: start: 20050101, end: 20050101

REACTIONS (6)
  - HYPERSENSITIVITY [None]
  - LOSS OF CONSCIOUSNESS [None]
  - MALAISE [None]
  - NASAL DISCOMFORT [None]
  - PHARYNGEAL OEDEMA [None]
  - THROAT IRRITATION [None]
